FAERS Safety Report 6998100-5 (Version None)
Quarter: 2010Q3

REPORT INFORMATION
  Report Type: 
  Country: None (occurrence: None)
  Receive Date: 20100920
  Receipt Date: 20100616
  Transmission Date: 20110219
  Serious: Yes (Other)
  Sender: FDA-Public Use
  Company Number: US-ASTRAZENECA-2010SE29225

PATIENT
  Age: 19901 Day
  Sex: Female

DRUGS (1)
  1. SEROQUEL [Suspect]
     Dosage: 25-200 MG
     Route: 048
     Dates: start: 20020808

REACTIONS (11)
  - ALCOHOLISM [None]
  - BRONCHITIS CHRONIC [None]
  - CELLULITIS [None]
  - CHRONIC OBSTRUCTIVE PULMONARY DISEASE [None]
  - CORONARY ARTERY INSUFFICIENCY [None]
  - DIABETIC KETOACIDOSIS [None]
  - DRESSLER'S SYNDROME [None]
  - ESSENTIAL HYPERTENSION [None]
  - LIP ULCERATION [None]
  - OBSTRUCTIVE AIRWAYS DISORDER [None]
  - TYPE 2 DIABETES MELLITUS [None]
